FAERS Safety Report 12849158 (Version 1)
Quarter: 2016Q4

REPORT INFORMATION
  Report Type: Spontaneous
  Country: KR (occurrence: KR)
  Receive Date: 20161014
  Receipt Date: 20161014
  Transmission Date: 20170207
  Serious: Yes (Death, Other)
  Sender: FDA-Public Use
  Company Number: KR-ASTRAZENECA-2016SF06820

PATIENT
  Age: 54 Year
  Sex: Male

DRUGS (4)
  1. UNSPECIFIED ANTICANCER THERAPY [Concomitant]
     Indication: LUNG NEOPLASM MALIGNANT
  2. ALIMTA [Concomitant]
     Active Substance: PEMETREXED DISODIUM
     Indication: LUNG NEOPLASM MALIGNANT
  3. IRESSA [Suspect]
     Active Substance: GEFITINIB
     Indication: LUNG NEOPLASM MALIGNANT
     Route: 048
  4. TARCEVA [Concomitant]
     Active Substance: ERLOTINIB HYDROCHLORIDE
     Route: 048

REACTIONS (3)
  - Metastases to nervous system [Unknown]
  - General physical health deterioration [Unknown]
  - Pneumonia aspiration [Fatal]
